FAERS Safety Report 15907938 (Version 1)
Quarter: 2019Q1

REPORT INFORMATION
  Report Type: Spontaneous
  Country: CH (occurrence: CH)
  Receive Date: 20190204
  Receipt Date: 20190204
  Transmission Date: 20190417
  Serious: Yes (Hospitalization)
  Sender: FDA-Public Use
  Company Number: CH-AMREGENT-20190151

PATIENT
  Sex: Female
  Weight: 3.39 kg

DRUGS (1)
  1. FERINJECT [Suspect]
     Active Substance: FERRIC CARBOXYMALTOSE
     Dosage: 1000 MG, 1 TOTAL
     Route: 064
     Dates: start: 20180627, end: 20180627

REACTIONS (1)
  - Cardiac murmur [Unknown]
